FAERS Safety Report 5401663-4 (Version None)
Quarter: 2007Q3

REPORT INFORMATION
  Report Type: 
  Country: None (occurrence: None)
  Receive Date: 20070731
  Receipt Date: 20070604
  Transmission Date: 20080115
  Serious: Yes (Death, Other)
  Sender: FDA-Public Use
  Company Number: US-PURDUE-USA_2007_0027942

PATIENT
  Age: 81 Year
  Sex: Female

DRUGS (25)
  1. OXYCONTIN [Suspect]
     Indication: DRUG USE FOR UNKNOWN INDICATION
     Dosage: UNK, SEE TEXT
     Dates: start: 19980715, end: 20020803
  2. LORCET-HD [Concomitant]
  3. NEURONTIN [Concomitant]
  4. SKELAXIN [Concomitant]
  5. ACCUPRIL [Concomitant]
  6. PROMETHAZINE HCL [Concomitant]
  7. DOXEPIN HCL [Concomitant]
  8. ATIVAN [Concomitant]
  9. KLONOPIN [Concomitant]
  10. HYDROCHLOROTHIAZIDE [Concomitant]
  11. BACTRIM [Concomitant]
  12. CELEXA [Concomitant]
  13. ZYPREXA [Concomitant]
  14. ASPIRIN [Concomitant]
  15. PRILOSEC [Concomitant]
  16. VANCOMYCIN [Concomitant]
  17. TRAZODONE HYDROCHLORIDE [Concomitant]
  18. EFFEXOR [Concomitant]
  19. CLONIDINE [Concomitant]
  20. SYNTHROID [Concomitant]
  21. ZANTAC 150 [Concomitant]
  22. ALPHAGAN [Concomitant]
  23. MYCOSTATIN [Concomitant]
  24. CATAPRES [Concomitant]
  25. PERCOCET [Concomitant]

REACTIONS (14)
  - ABASIA [None]
  - AMNESIA [None]
  - BEDRIDDEN [None]
  - CEREBROVASCULAR ACCIDENT [None]
  - CONFUSIONAL STATE [None]
  - DEATH [None]
  - DRUG DEPENDENCE [None]
  - FAECAL INCONTINENCE [None]
  - FALL [None]
  - HEADACHE [None]
  - MYOCARDIAL INFARCTION [None]
  - PNEUMONIA [None]
  - URINARY INCONTINENCE [None]
  - UROSEPSIS [None]
